FAERS Safety Report 9271739 (Version 2)
Quarter: 2013Q2

REPORT INFORMATION
  Report Type: Spontaneous
  Country: US (occurrence: US)
  Receive Date: 20130506
  Receipt Date: 20130514
  Transmission Date: 20140414
  Serious: Yes (Other)
  Sender: FDA-Public Use
  Company Number: US-BAYER-2013-056069

PATIENT
  Age: 54 Year
  Sex: Male
  Weight: 159 kg

DRUGS (5)
  1. ALEVE CAPLET [Suspect]
     Indication: ANALGESIC THERAPY
     Dosage: 1 DF, PRN
     Route: 048
     Dates: start: 2004
  2. MULTIVITAMIN [Concomitant]
  3. TRAMADOL [Concomitant]
  4. HYDROCODONE [Concomitant]
  5. FLEXERIL [Concomitant]

REACTIONS (4)
  - Rectal haemorrhage [None]
  - Abdominal discomfort [None]
  - Gastrooesophageal reflux disease [None]
  - Incorrect drug administration duration [None]
